FAERS Safety Report 24308430 (Version 1)
Quarter: 2024Q3

REPORT INFORMATION
  Report Type: Spontaneous
  Country: CA (occurrence: CA)
  Receive Date: 20240911
  Receipt Date: 20240911
  Transmission Date: 20241016
  Serious: Yes (Other)
  Sender: PFIZER
  Company Number: CA-PFIZER INC-202400253752

PATIENT
  Age: 63 Year
  Sex: Female

DRUGS (8)
  1. METHOTREXATE SODIUM [Suspect]
     Active Substance: METHOTREXATE SODIUM
     Dosage: 25 MG, WEEKLY
     Route: 058
     Dates: start: 202402
  2. RINVOQ [Concomitant]
     Active Substance: UPADACITINIB
     Dosage: 45 MG, DAILY
     Dates: start: 202402
  3. RINVOQ [Concomitant]
     Active Substance: UPADACITINIB
     Dosage: 15 MG DAILY
     Dates: start: 202402
  4. RINVOQ [Concomitant]
     Active Substance: UPADACITINIB
     Dosage: 15 MG 2 DAYS ON, 2 DAYS OFF
     Dates: start: 202402
  5. LEFLUNOMIDE [Concomitant]
     Active Substance: LEFLUNOMIDE
     Dosage: 10 MG
  6. TYLENOL [Concomitant]
     Active Substance: ACETAMINOPHEN
  7. FOLIC ACID [Concomitant]
     Active Substance: FOLIC ACID
  8. ESOMEPRAZOLE [Concomitant]
     Active Substance: ESOMEPRAZOLE

REACTIONS (11)
  - Rectal haemorrhage [Not Recovered/Not Resolved]
  - Diarrhoea haemorrhagic [Not Recovered/Not Resolved]
  - Arthralgia [Not Recovered/Not Resolved]
  - Fatigue [Not Recovered/Not Resolved]
  - Burning sensation [Not Recovered/Not Resolved]
  - Joint swelling [Not Recovered/Not Resolved]
  - Musculoskeletal stiffness [Not Recovered/Not Resolved]
  - Rash [Not Recovered/Not Resolved]
  - Metatarsalgia [Recovering/Resolving]
  - Pain in extremity [Unknown]
  - Headache [Not Recovered/Not Resolved]

NARRATIVE: CASE EVENT DATE: 20240101
